FAERS Safety Report 11106227 (Version 2)
Quarter: 2015Q2

REPORT INFORMATION
  Report Type: Spontaneous
  Country: CA (occurrence: CA)
  Receive Date: 20150512
  Receipt Date: 20150518
  Transmission Date: 20150821
  Serious: Yes (Other)
  Sender: FDA-Public Use
  Company Number: CA-JNJFOC-20150503310

PATIENT
  Age: 55 Year
  Sex: Female

DRUGS (1)
  1. SUDAFED SINUS ADVANCED [Suspect]
     Active Substance: PSEUDOEPHEDRINE HYDROCHLORIDE
     Indication: SINUS DISORDER
     Dosage: DOSAGE: 1 TABLET ONCE OR TWICE A DAY
     Route: 048

REACTIONS (3)
  - Lung disorder [Unknown]
  - Chest pain [Not Recovered/Not Resolved]
  - Dyspnoea [Not Recovered/Not Resolved]
